FAERS Safety Report 7382962-6 (Version None)
Quarter: 2011Q1

REPORT INFORMATION
  Report Type: 
  Country: None (occurrence: None)
  Receive Date: 20110328
  Receipt Date: 20110328
  Transmission Date: 20110831
  Serious: No
  Sender: FDA-Public Use
  Company Number: None

PATIENT
  Sex: Female
  Weight: 70.3075 kg

DRUGS (6)
  1. PRAVASTATIN [Concomitant]
  2. CALCIUM WITH VITAMIN D [Concomitant]
  3. LISINOPRIL [Suspect]
     Dosage: 40 MG QAM PO
     Route: 048
     Dates: start: 20110308
  4. LISINOPRIL [Suspect]
     Indication: HYPERTENSION
     Dosage: 40 MG QAM PO
     Route: 048
     Dates: start: 20110301, end: 20110308
  5. ASPIRIN [Concomitant]
  6. MV [Concomitant]

REACTIONS (4)
  - HYPOKALAEMIA [None]
  - DRUG INEFFECTIVE [None]
  - BLOOD PRESSURE SYSTOLIC INCREASED [None]
  - PRODUCT SUBSTITUTION ISSUE [None]
